FAERS Safety Report 12536896 (Version 3)
Quarter: 2016Q3

REPORT INFORMATION
  Report Type: Report from Study
  Country: PT (occurrence: PT)
  Receive Date: 20160707
  Receipt Date: 20160902
  Transmission Date: 20161109
  Serious: Yes (Other)
  Sender: FDA-Public Use
  Company Number: PT-BIOGEN-2016BI00247587

PATIENT
  Age: 35 Year
  Sex: Female

DRUGS (3)
  1. AMOXICILLIN PLUS CLAVULANIC ACID [Concomitant]
     Active Substance: AMOXICILLIN\CLAVULANIC ACID
     Indication: PRODUCT USED FOR UNKNOWN INDICATION
     Route: 065
  2. TECFIDERA [Suspect]
     Active Substance: DIMETHYL FUMARATE
     Indication: MULTIPLE SCLEROSIS
     Route: 048
     Dates: start: 20160427
  3. TECFIDERA [Suspect]
     Active Substance: DIMETHYL FUMARATE
     Route: 048
     Dates: start: 20151017, end: 20160820

REACTIONS (16)
  - Sputum discoloured [Not Recovered/Not Resolved]
  - Facial pain [Not Recovered/Not Resolved]
  - Ocular hyperaemia [Not Recovered/Not Resolved]
  - Ear pain [Recovered/Resolved]
  - Flushing [Unknown]
  - Anosmia [Not Recovered/Not Resolved]
  - Eye discharge [Not Recovered/Not Resolved]
  - Pharyngitis [Not Recovered/Not Resolved]
  - Cough [Not Recovered/Not Resolved]
  - Asthenia [Not Recovered/Not Resolved]
  - Pruritus [Unknown]
  - Influenza like illness [Not Recovered/Not Resolved]
  - Odynophagia [Recovered/Resolved]
  - Ageusia [Not Recovered/Not Resolved]
  - Drug dose omission [Recovered/Resolved]
  - Burning sensation [Unknown]

NARRATIVE: CASE EVENT DATE: 201510
